FAERS Safety Report 9430827 (Version 1)
Quarter: 2013Q3

REPORT INFORMATION
  Report Type: Report from Study
  Country: US (occurrence: US)
  Receive Date: 20130730
  Receipt Date: 20130730
  Transmission Date: 20140515
  Serious: No
  Sender: FDA-Public Use
  Company Number: US-ABBOTT-13P-163-1084812-00

PATIENT
  Sex: Female
  Weight: 72.19 kg

DRUGS (5)
  1. NIASPAN (COATED) [Suspect]
     Indication: LIPOPROTEIN (A)
     Dosage: FOR TWO WEEKS
     Route: 048
  2. NIASPAN (COATED) [Suspect]
     Dosage: FOR TWO WEEKS
     Route: 048
  3. NIASPAN (COATED) [Suspect]
     Dosage: FOR 2 WEEKS
  4. NIASPAN (COATED) [Suspect]
     Dosage: AT BEDTIME
     Route: 048
  5. DIETARY SUPPLEMENTS [Concomitant]
     Indication: PRODUCT USED FOR UNKNOWN INDICATION

REACTIONS (1)
  - Flushing [Recovered/Resolved]
